FAERS Safety Report 15362934 (Version 3)
Quarter: 2020Q3

REPORT INFORMATION
  Report Type: Report from Study
  Country: IT (occurrence: IT)
  Receive Date: 20180907
  Receipt Date: 20181017
  Transmission Date: 20201105
  Serious: Yes (Death, Hospitalization)
  Sender: FDA-Public Use
  Company Number: IT-JNJFOC-20180841609

PATIENT
  Age: 58 Year
  Sex: Female
  Weight: 54 kg

DRUGS (15)
  1. TRABECTEDIN [Suspect]
     Active Substance: TRABECTEDIN
     Indication: OVARIAN CANCER RECURRENT
     Route: 042
     Dates: start: 20180817, end: 20180817
  2. FUROSEMIDE. [Concomitant]
     Active Substance: FUROSEMIDE
     Indication: FLUID RETENTION
     Route: 048
     Dates: start: 20180824
  3. FRAXIPARINE [Concomitant]
     Active Substance: NADROPARIN CALCIUM
     Indication: THROMBOSIS PROPHYLAXIS
     Route: 058
  4. LANSOX [Concomitant]
     Active Substance: LANSOPRAZOLE
     Dosage: DOSE 30
     Route: 065
  5. ENOXAPARIN SODIUM. [Concomitant]
     Active Substance: ENOXAPARIN SODIUM
     Indication: THROMBOSIS PROPHYLAXIS
     Route: 065
  6. CANRENONE [Concomitant]
     Active Substance: CANRENONE
     Route: 065
  7. SELEPARINA [Concomitant]
     Active Substance: NADROPARIN CALCIUM
     Dosage: 0.6 X 2
     Route: 065
  8. PLD [Suspect]
     Active Substance: DOXORUBICIN HYDROCHLORIDE
     Indication: OVARIAN CANCER RECURRENT
     Route: 042
     Dates: start: 20180817, end: 20180817
  9. CANRENONE [Concomitant]
     Active Substance: CANRENONE
     Indication: FLUID RETENTION
     Route: 065
     Dates: start: 20180824
  10. PLD [Suspect]
     Active Substance: DOXORUBICIN HYDROCHLORIDE
     Route: 042
  11. LASIX [Concomitant]
     Active Substance: FUROSEMIDE
     Route: 065
  12. TRABECTEDIN [Suspect]
     Active Substance: TRABECTEDIN
     Route: 042
  13. SOLDESAM [Concomitant]
     Active Substance: DEXAMETHASONE
     Dosage: 64 DROPS BEFORE + DURING CYCLE
     Route: 065
  14. ONDANSETRON [Concomitant]
     Active Substance: ONDANSETRON
     Dosage: AS NEEDED
     Route: 065
  15. LEVOFLOXACIN. [Concomitant]
     Active Substance: LEVOFLOXACIN
     Route: 042
     Dates: start: 20180829

REACTIONS (2)
  - Ileus paralytic [Fatal]
  - Septic shock [Fatal]

NARRATIVE: CASE EVENT DATE: 20180824
